FAERS Safety Report 6699813-5 (Version None)
Quarter: 2010Q2

REPORT INFORMATION
  Report Type: 
  Country: None (occurrence: None)
  Receive Date: 20100428
  Receipt Date: 20090608
  Transmission Date: 20101027
  Serious: No
  Sender: FDA-Public Use
  Company Number: A0829541A

PATIENT
  Sex: Male

DRUGS (1)
  1. LUXIQ [Suspect]
     Indication: DRUG USE FOR UNKNOWN INDICATION
     Route: 061
     Dates: start: 20090608

REACTIONS (1)
  - APPLICATION SITE PAIN [None]
